FAERS Safety Report 8795277 (Version 3)
Quarter: 2013Q2

REPORT INFORMATION
  Report Type: Report from Study
  Country: JP (occurrence: JP)
  Receive Date: 20120917
  Receipt Date: 20130423
  Transmission Date: 20140414
  Serious: Yes (Other)
  Sender: FDA-Public Use
  Company Number: JP-VERTEX PHARMACEUTICAL INC.-AE-2012-007913

PATIENT
  Age: 60 Year
  Sex: Male

DRUGS (16)
  1. VX-950 (TELAPREVIR) [Suspect]
     Indication: CHRONIC HEPATITIS C
     Dosage: 2250 MG, QD
     Route: 048
     Dates: start: 20120405, end: 20120418
  2. VX-950 (TELAPREVIR) [Suspect]
     Dosage: 1500 MG, QD
     Route: 048
     Dates: start: 20120419, end: 20120425
  3. VX-950 (TELAPREVIR) [Suspect]
     Dosage: 1500 MG, QD
     Route: 048
     Dates: start: 20120510, end: 20120627
  4. RIBAVIRIN [Suspect]
     Indication: CHRONIC HEPATITIS C
     Dosage: 800 MG, QD
     Route: 048
     Dates: start: 20120405, end: 20120418
  5. RIBAVIRIN [Suspect]
     Dosage: 200 MG, QD
     Route: 048
     Dates: start: 20120419, end: 20120425
  6. RIBAVIRIN [Suspect]
     Dosage: 200 MG, QD
     Route: 048
     Dates: start: 20120510, end: 20120627
  7. RIBAVIRIN [Suspect]
     Dosage: 200 MG / 2 DAYS
     Route: 048
     Dates: start: 20120628
  8. PEGINTERFERON ALFA-2B [Suspect]
     Indication: CHRONIC HEPATITIS C
     Dosage: 0.6 ?G/KG, QW
     Route: 058
     Dates: start: 20120405, end: 20120425
  9. PEGINTERFERON ALFA-2B [Suspect]
     Dosage: 0.7 ?G/KG, QW
     Route: 058
     Dates: start: 20120510, end: 20120516
  10. PEGINTERFERON ALFA-2B [Suspect]
     Dosage: 0.6 ?G/KG, QW
     Route: 058
     Dates: start: 20120517
  11. PEGINTERFERON ALFA-2B [Suspect]
     Dosage: 0.6 ?G/KG, QW
     Route: 058
     Dates: end: 20120516
  12. PEGINTERFERON ALFA-2B [Suspect]
     Dosage: 0.5 ?G/KG, QW
     Route: 058
     Dates: start: 20120517, end: 20120530
  13. PEGINTERFERON ALFA-2B [Suspect]
     Dosage: 0.4 ?G/KG, QW
     Route: 058
     Dates: start: 20120531, end: 20120620
  14. PEGINTERFERON ALFA-2B [Suspect]
     Dosage: 0.3 ?G/KG, QW
     Route: 058
     Dates: start: 20120621
  15. OLMETEC [Concomitant]
     Dosage: 10 MG, QD
     Route: 048
  16. URSO [Concomitant]
     Dosage: 300 MG, QD
     Route: 048

REACTIONS (1)
  - White blood cell count decreased [Recovered/Resolved]
